FAERS Safety Report 7020809-8 (Version None)
Quarter: 2010Q3

REPORT INFORMATION
  Report Type: 
  Country: None (occurrence: None)
  Receive Date: 20100929
  Receipt Date: 20100923
  Transmission Date: 20110219
  Serious: Yes (Death)
  Sender: FDA-Public Use
  Company Number: TW-MERCK-1009TWN00063

PATIENT
  Age: 91 Year
  Sex: Male
  Weight: 40 kg

DRUGS (1)
  1. FOSAMAX PLUS D [Suspect]
     Indication: OSTEOPOROSIS
     Route: 048
     Dates: start: 20091229, end: 20100311

REACTIONS (1)
  - ACUTE RESPIRATORY FAILURE [None]
